FAERS Safety Report 10857238 (Version 1)
Quarter: 2015Q1

REPORT INFORMATION
  Report Type: Spontaneous
  Country: AU (occurrence: AU)
  Receive Date: 20150223
  Receipt Date: 20150223
  Transmission Date: 20150721
  Serious: Yes (Other)
  Sender: FDA-Public Use
  Company Number: PHHY2015AU015700

PATIENT
  Sex: Male

DRUGS (1)
  1. SANDOSTATIN LAR DEPOT [Suspect]
     Active Substance: OCTREOTIDE ACETATE
     Indication: NEUROENDOCRINE TUMOUR
     Dosage: 30 MG, UNK
     Route: 065
     Dates: start: 201411

REACTIONS (6)
  - No therapeutic response [Unknown]
  - Folliculitis [Unknown]
  - Oesophageal spasm [Unknown]
  - Spinal cord compression [Unknown]
  - Malignant neoplasm progression [Unknown]
  - Dyspepsia [Unknown]
